FAERS Safety Report 6988944-8 (Version None)
Quarter: 2010Q3

REPORT INFORMATION
  Report Type: 
  Country: None (occurrence: None)
  Receive Date: 20100916
  Receipt Date: 20090727
  Transmission Date: 20110219
  Serious: Yes (Other)
  Sender: FDA-Public Use
  Company Number: ZA-PFIZER INC-2009246910

PATIENT
  Age: 78 Year
  Sex: Female
  Weight: 60 kg

DRUGS (2)
  1. LYRICA [Suspect]
     Dosage: 75 MG, 2X/DAY
     Route: 048
  2. SALAZOPYRIN [Concomitant]

REACTIONS (3)
  - BLOOD CREATINE PHOSPHOKINASE INCREASED [None]
  - HYPERTHERMIA MALIGNANT [None]
  - NEUROLOGICAL SYMPTOM [None]
